FAERS Safety Report 4751137-9 (Version None)
Quarter: 2005Q3

REPORT INFORMATION
  Report Type: 
  Country: None (occurrence: None)
  Receive Date: 20050822
  Receipt Date: 20050809
  Transmission Date: 20060218
  Serious: Yes (Other)
  Sender: FDA-Public Use
  Company Number: 2005114434

PATIENT
  Sex: Female

DRUGS (2)
  1. BEXTRA [Suspect]
     Indication: ARTHRALGIA
     Dosage: (20 MG ) , ORAL
     Route: 048
     Dates: start: 20041101
  2. TYLENOL W/ CODEINE NO. 3 [Suspect]
     Indication: ILL-DEFINED DISORDER
     Dates: start: 20050101, end: 20050101

REACTIONS (5)
  - DIARRHOEA [None]
  - GASTROINTESTINAL PAIN [None]
  - HIP ARTHROPLASTY [None]
  - NAUSEA [None]
  - ULCER [None]
